FAERS Safety Report 23508485 (Version 2)
Quarter: 2025Q1

REPORT INFORMATION
  Report Type: Spontaneous
  Country: FR (occurrence: FR)
  Receive Date: 20240209
  Receipt Date: 20250317
  Transmission Date: 20250408
  Serious: Yes (Other)
  Sender: ANI
  Company Number: FR-ANIPHARMA-2024-FR-000031

PATIENT
  Sex: Female
  Weight: 62 kg

DRUGS (2)
  1. ARIMIDEX [Suspect]
     Active Substance: ANASTROZOLE
     Indication: Hormone receptor positive breast cancer
     Route: 048
     Dates: start: 20231101
  2. LETROZOLE [Suspect]
     Active Substance: LETROZOLE
     Route: 048
     Dates: start: 20230630, end: 20231031

REACTIONS (4)
  - Visual acuity reduced [Unknown]
  - Retinal detachment [Unknown]
  - Maculopathy [Unknown]
  - Glaucoma [Unknown]

NARRATIVE: CASE EVENT DATE: 20230117
